FAERS Safety Report 25154616 (Version 2)
Quarter: 2025Q2

REPORT INFORMATION
  Report Type: Report from Study
  Country: IE (occurrence: IE)
  Receive Date: 20250403
  Receipt Date: 20250408
  Transmission Date: 20250717
  Serious: Yes (Other)
  Sender: EMD SERONO INC
  Company Number: IE-Merck Healthcare KGaA-2025012314

PATIENT
  Sex: Female

DRUGS (1)
  1. MAVENCLAD [Suspect]
     Active Substance: CLADRIBINE
     Indication: Relapsing-remitting multiple sclerosis
     Dates: start: 20250303, end: 20250307

REACTIONS (2)
  - Lower respiratory tract infection [Recovered/Resolved]
  - Ear infection [Recovered/Resolved]
